FAERS Safety Report 23505871 (Version 1)
Quarter: 2024Q1

REPORT INFORMATION
  Report Type: Spontaneous
  Country: US (occurrence: US)
  Receive Date: 20240209
  Receipt Date: 20240209
  Transmission Date: 20240410
  Serious: No
  Sender: FDA-Public Use
  Company Number: US-REGENERON PHARMACEUTICALS, INC.-2024-027291

PATIENT
  Sex: Male

DRUGS (1)
  1. EVKEEZA [Suspect]
     Active Substance: EVINACUMAB-DGNB
     Indication: Product used for unknown indication
     Route: 065

REACTIONS (4)
  - Muscle spasms [Unknown]
  - Depression [Unknown]
  - Nausea [Unknown]
  - Influenza like illness [Unknown]
